FAERS Safety Report 8885815 (Version 2)
Quarter: 2013Q1

REPORT INFORMATION
  Report Type: Report from Study
  Country: CZ (occurrence: CZ)
  Receive Date: 20121105
  Receipt Date: 20130118
  Transmission Date: 20140127
  Serious: No
  Sender: FDA-Public Use
  Company Number: CZ-ELI_LILLY_AND_COMPANY-CZ201210007504

PATIENT
  Age: 25 Year
  Sex: Male

DRUGS (3)
  1. OLANZAPINE LONG-ACTING IM [Suspect]
     Indication: SCHIZOPHRENIA
     Dosage: 405 MG, MONTHLY (1/M)
     Route: 030
     Dates: start: 201205
  2. OLANZAPINE LONG-ACTING IM [Suspect]
     Dosage: 300 MG, UNK
     Route: 030
     Dates: start: 20120814, end: 20120814
  3. ASENTRA [Concomitant]
     Indication: MAJOR DEPRESSION
     Dosage: 50 MG, QD
     Dates: start: 20120502

REACTIONS (2)
  - Extrapyramidal disorder [Recovered/Resolved]
  - Sedation [Recovered/Resolved]
